FAERS Safety Report 6434261-4 (Version None)
Quarter: 2009Q4

REPORT INFORMATION
  Report Type: 
  Country: None (occurrence: None)
  Receive Date: 20091110
  Receipt Date: 20090126
  Transmission Date: 20100525
  Serious: No
  Sender: FDA-Public Use
  Company Number: US-ASTRAZENECA-2009UW18617

PATIENT
  Age: 67 Year
  Sex: Female

DRUGS (6)
  1. PRILOSEC OTC [Suspect]
     Indication: GASTRITIS
     Dosage: 1 TABLET, 1 /DAY FOR 24 DAYS
     Route: 048
     Dates: start: 20081126, end: 20081220
  2. LISINOPRIL [Concomitant]
     Dosage: UNKNOWN
  3. WELCHOL [Concomitant]
     Dosage: UNKNOWN
  4. LYRICA [Concomitant]
     Dosage: UNKNOWN
  5. ESTRADIOL [Concomitant]
     Dosage: UNKNOWN
  6. TRAMADOL HCL [Concomitant]
     Dosage: UNKNOWN

REACTIONS (6)
  - ABDOMINAL PAIN UPPER [None]
  - BURNING SENSATION [None]
  - CHEST PAIN [None]
  - CONDITION AGGRAVATED [None]
  - DRUG INEFFECTIVE [None]
  - INCORRECT DRUG ADMINISTRATION DURATION [None]
